FAERS Safety Report 17036012 (Version 1)
Quarter: 2019Q4

REPORT INFORMATION
  Report Type: Spontaneous
  Country: US (occurrence: US)
  Receive Date: 20191114
  Receipt Date: 20191114
  Transmission Date: 20200122
  Serious: Yes (Death)
  Sender: FDA-Public Use
  Company Number: None

PATIENT
  Age: 45 Year
  Sex: Female
  Weight: 74.5 kg

DRUGS (15)
  1. CELEXA PO DAILY [Concomitant]
  2. NAPROXEN PO PRN [Concomitant]
  3. DUPILUMAB [Suspect]
     Active Substance: DUPILUMAB
     Indication: ASTHMA
     Dosage: ?          OTHER FREQUENCY:Q2WEEKS;?
     Route: 058
     Dates: start: 20190506, end: 20190604
  4. DUPILUMAB [Suspect]
     Active Substance: DUPILUMAB
     Indication: ECZEMA
     Dosage: ?          OTHER FREQUENCY:Q2WEEKS;?
     Route: 058
     Dates: start: 20190506, end: 20190604
  5. MAGNESIUM PO DAILY [Concomitant]
  6. TRIAMCINOLONE TOP PRN [Concomitant]
  7. DUPILUMAB [Suspect]
     Active Substance: DUPILUMAB
     Indication: ALOPECIA
     Dosage: ?          OTHER FREQUENCY:Q2WEEKS;?
     Route: 058
     Dates: start: 20190506, end: 20190604
  8. LORATIDINE PO DAILY [Concomitant]
  9. ALBUTEROL INH PRN [Concomitant]
  10. VITAMIN D PO DAILY [Concomitant]
  11. LISINOPRIL PO DAILY [Concomitant]
  12. ALPRAZOLAM PO PRN [Concomitant]
  13. BENADRYL PO PRN [Concomitant]
  14. IBUPROFEN PO PRN [Concomitant]
  15. CRYSELLE PO DAILY [Concomitant]

REACTIONS (13)
  - Pain in extremity [None]
  - Colitis ischaemic [None]
  - Hypoaesthesia [None]
  - Peritonitis [None]
  - Asthenia [None]
  - Lung infiltration [None]
  - Eosinophil count [None]
  - Candida infection [None]
  - Respiratory failure [None]
  - Oropharyngeal pain [None]
  - Dizziness [None]
  - Pyrexia [None]
  - Septic shock [None]

NARRATIVE: CASE EVENT DATE: 20190607
